FAERS Safety Report 11914562 (Version 2)
Quarter: 2016Q1

REPORT INFORMATION
  Report Type: Spontaneous
  Country: US (occurrence: US)
  Receive Date: 20160113
  Receipt Date: 20160114
  Transmission Date: 20160526
  Serious: No
  Sender: FDA-Public Use
  Company Number: US-009507513-1512USA014132

PATIENT
  Sex: Female
  Weight: 79.37 kg

DRUGS (1)
  1. NEXPLANON [Suspect]
     Active Substance: ETONOGESTREL
     Indication: CONTRACEPTION
     Dosage: UNK
     Route: 059
     Dates: start: 20150827

REACTIONS (7)
  - Depression [Unknown]
  - Dyspnoea [Unknown]
  - Dizziness [Unknown]
  - Irritability [Unknown]
  - Stress [Unknown]
  - Angina pectoris [Unknown]
  - Weight increased [Unknown]

NARRATIVE: CASE EVENT DATE: 2015
